FAERS Safety Report 12554387 (Version 1)
Quarter: 2016Q3

REPORT INFORMATION
  Report Type: Spontaneous
  Country: BE (occurrence: BE)
  Receive Date: 20160713
  Receipt Date: 20160713
  Transmission Date: 20161109
  Serious: Yes (Other)
  Sender: FDA-Public Use
  Company Number: BE-GLAXOSMITHKLINE-BE2016GSK097903

PATIENT
  Sex: Male

DRUGS (1)
  1. FLIXOTIDE MDI [Suspect]
     Active Substance: FLUTICASONE PROPIONATE
     Indication: EOSINOPHILIC OESOPHAGITIS
     Dosage: 250 UNK, UNK
     Dates: start: 2016, end: 2016

REACTIONS (4)
  - Off label use [Unknown]
  - Respiratory failure [Unknown]
  - Malaise [Unknown]
  - Drug hypersensitivity [None]

NARRATIVE: CASE EVENT DATE: 2016
